FAERS Safety Report 19020918 (Version 1)
Quarter: 2021Q1

REPORT INFORMATION
  Report Type: Spontaneous
  Country: US (occurrence: US)
  Receive Date: 20210317
  Receipt Date: 20210317
  Transmission Date: 20210420
  Serious: Yes (Other)
  Sender: FDA-Public Use
  Company Number: US-STRIDES ARCOLAB LIMITED-2020SP016653

PATIENT
  Age: 30 Year
  Sex: Male

DRUGS (2)
  1. PREDNISOLONE. [Suspect]
     Active Substance: PREDNISOLONE
     Indication: CROHN^S DISEASE
     Dosage: MULTIPLE COURSES
     Route: 065
  2. VEDOLIZUMAB [Suspect]
     Active Substance: VEDOLIZUMAB
     Indication: CROHN^S DISEASE
     Dosage: MULTIPLE COURSES
     Route: 065

REACTIONS (1)
  - Treatment failure [Unknown]
